FAERS Safety Report 10220107 (Version 2)
Quarter: 2014Q3

REPORT INFORMATION
  Report Type: Report from Study
  Country: US (occurrence: US)
  Receive Date: 20140605
  Receipt Date: 20140703
  Transmission Date: 20150326
  Serious: Yes (Hospitalization)
  Sender: FDA-Public Use
  Company Number: US-ACTELION-A-US2014-099848

PATIENT
  Age: 3 Year
  Sex: Female

DRUGS (2)
  1. SILDENAFIL [Concomitant]
     Active Substance: SILDENAFIL
  2. TRACLEER [Suspect]
     Active Substance: BOSENTAN\BOSENTAN MONOHYDRATE
     Indication: PULMONARY ARTERIAL HYPERTENSION
     Dosage: 15.625 MG, UNK
     Route: 048
     Dates: start: 20130428

REACTIONS (6)
  - Pyrexia [Recovered/Resolved]
  - Nasal congestion [Recovered/Resolved]
  - Viral upper respiratory tract infection [Recovered/Resolved]
  - Cough [Recovered/Resolved]
  - Hypoxia [Recovered/Resolved]
  - Influenza like illness [Recovered/Resolved]

NARRATIVE: CASE EVENT DATE: 20140428
